FAERS Safety Report 10195168 (Version 2)
Quarter: 2014Q2

REPORT INFORMATION
  Report Type: Spontaneous
  Country: US (occurrence: US)
  Receive Date: 20140526
  Receipt Date: 20140527
  Transmission Date: 20141212
  Serious: No
  Sender: FDA-Public Use
  Company Number: US-009507513-1405USA009697

PATIENT
  Age: 54 Year
  Sex: Male

DRUGS (4)
  1. PEGINTRON [Suspect]
     Indication: HEPATITIS C
     Dosage: 0.4 ML, QW
     Dates: start: 20140315
  2. REBETOL [Suspect]
     Indication: HEPATITIS C
     Dosage: UNK
     Route: 048
  3. SOFOSBUVIR [Concomitant]
     Dosage: UNK
  4. PROZAC [Concomitant]
     Dosage: UNK

REACTIONS (1)
  - Burning sensation [Recovered/Resolved]
